FAERS Safety Report 8887524 (Version 1)
Quarter: 2012Q4

REPORT INFORMATION
  Report Type: Spontaneous
  Country: US (occurrence: None)
  Receive Date: 20121101
  Receipt Date: 20121101
  Transmission Date: 20130627
  Serious: Yes (Other)
  Sender: FDA-Public Use
  Company Number: None

PATIENT

DRUGS (1)
  1. XELODA [Suspect]
     Indication: COLON CANCER
     Dosage: 1500 MG TWICE A DAY BY MOUTH
     Route: 048
     Dates: start: 201208

REACTIONS (8)
  - Flushing [None]
  - Back pain [None]
  - Rash [None]
  - Gingival bleeding [None]
  - Amnesia [None]
  - Oesophageal pain [None]
  - Hot flush [None]
  - Fatigue [None]
